FAERS Safety Report 4872803-0 (Version None)
Quarter: 2005Q4

REPORT INFORMATION
  Report Type: 
  Country: None (occurrence: None)
  Receive Date: 20051201
  Receipt Date: 20050714
  Transmission Date: 20060501
  Serious: No
  Sender: FDA-Public Use
  Company Number: 2005PV000326

PATIENT
  Age: 42 Year
  Sex: Female
  Weight: 76.2043 kg

DRUGS (8)
  1. BYETTA [Suspect]
     Indication: HYPOGLYCAEMIA
     Dosage: 5 MCG; BID; SC
     Route: 058
     Dates: start: 20050709, end: 20050711
  2. SYNTHROID [Concomitant]
  3. GROWTH HORMONE [Concomitant]
  4. BIRTH CONTROL PILL [Concomitant]
  5. KLONOPIN [Concomitant]
  6. ADVIL [Concomitant]
  7. ALLEGRA [Concomitant]
  8. PSEUDOEPHEDRINE HCL [Concomitant]

REACTIONS (6)
  - DYSPNOEA [None]
  - EARLY SATIETY [None]
  - FEELING JITTERY [None]
  - HEART RATE INCREASED [None]
  - HYPOGLYCAEMIA [None]
  - NAUSEA [None]
